FAERS Safety Report 9351788 (Version 2)
Quarter: 2013Q3

REPORT INFORMATION
  Report Type: Report from Study
  Country: BR (occurrence: BR)
  Receive Date: 20130617
  Receipt Date: 20130731
  Transmission Date: 20140515
  Serious: Yes (Hospitalization, Other)
  Sender: FDA-Public Use
  Company Number: BR-BAYER-2013-072237

PATIENT
  Age: 30 Year
  Sex: Female

DRUGS (5)
  1. BETAFERON [Suspect]
     Indication: MULTIPLE SCLEROSIS
     Dosage: 1 ML, QOD
     Route: 058
     Dates: start: 201207, end: 201305
  2. CLONAZEPAM [Concomitant]
     Indication: DEPRESSION
     Dosage: 1 DF, QD
     Route: 048
     Dates: start: 201302
  3. CLONAZEPAM [Concomitant]
     Indication: SLEEP DISORDER
  4. TOPIRAMATE [Concomitant]
     Indication: DEPRESSION
     Dosage: 300 MG, BID
     Route: 048
     Dates: start: 201211
  5. ESCITALOPRAM [Concomitant]
     Indication: DEPRESSION
     Dosage: 4 MG, OM
     Route: 048

REACTIONS (3)
  - Multiple sclerosis relapse [Recovered/Resolved]
  - Musculoskeletal disorder [Recovered/Resolved]
  - Multiple sclerosis [Not Recovered/Not Resolved]
